FAERS Safety Report 6149542-1 (Version None)
Quarter: 2009Q2

REPORT INFORMATION
  Report Type: 
  Country: None (occurrence: None)
  Receive Date: 20090409
  Receipt Date: 20090331
  Transmission Date: 20091009
  Serious: Yes (Death, Hospitalization)
  Sender: FDA-Public Use
  Company Number: JP-JNJFOC-20090306770

PATIENT
  Sex: Male
  Weight: 58 kg

DRUGS (7)
  1. REMICADE [Suspect]
     Dosage: 13 INFUSIONS TOTAL ADMINISTERED
     Route: 042
  2. REMICADE [Suspect]
     Dosage: INFUSIONS 2-12 ADMINISTERED ON UNKNOWN DATES
     Route: 042
  3. REMICADE [Suspect]
     Indication: RHEUMATOID ARTHRITIS
     Dosage: FIRST INFUSION
     Route: 042
  4. RHEUMATREX [Concomitant]
     Indication: RHEUMATOID ARTHRITIS
     Route: 048
  5. MOBIC [Concomitant]
     Route: 048
  6. ISCOTIN [Concomitant]
     Route: 048
  7. PYDOXAL [Concomitant]
     Route: 048

REACTIONS (6)
  - ARTHRALGIA [None]
  - CONSTIPATION [None]
  - CREUTZFELDT-JAKOB DISEASE [None]
  - PNEUMONIA [None]
  - STRESS ULCER [None]
  - URINARY TRACT INFECTION [None]
